FAERS Safety Report 10361300 (Version 2)
Quarter: 2014Q3

REPORT INFORMATION
  Report Type: Spontaneous
  Country: US (occurrence: US)
  Receive Date: 20140804
  Receipt Date: 20140830
  Transmission Date: 20150326
  Serious: Yes (Other)
  Sender: FDA-Public Use
  Company Number: CHPA2014US009897

PATIENT
  Age: 72 Year
  Sex: Female

DRUGS (4)
  1. VOLTAREN XR [Suspect]
     Active Substance: DICLOFENAC SODIUM
     Route: 048
  2. VOLTAREN [Suspect]
     Active Substance: DICLOFENAC SODIUM
     Indication: OFF LABEL USE
  3. VOLTAREN [Suspect]
     Active Substance: DICLOFENAC SODIUM
     Indication: DRUG ADMINISTERED AT INAPPROPRIATE SITE
  4. VOLTAREN [Suspect]
     Active Substance: DICLOFENAC SODIUM
     Indication: ARTHRITIS
     Dosage: UNK, QD
     Route: 061
     Dates: start: 20140720

REACTIONS (2)
  - Underdose [Unknown]
  - Gastric haemorrhage [Unknown]
